FAERS Safety Report 10212532 (Version 1)
Quarter: 2014Q2

REPORT INFORMATION
  Report Type: Spontaneous
  Country: US (occurrence: US)
  Receive Date: 20140602
  Receipt Date: 20140602
  Transmission Date: 20141212
  Serious: No
  Sender: FDA-Public Use
  Company Number: US-AMGEN-USASP2014038134

PATIENT
  Age: 46 Year
  Sex: Female

DRUGS (2)
  1. ENBREL [Suspect]
     Indication: RHEUMATOID ARTHRITIS
     Dosage: 50 MG, QWK
     Route: 065
     Dates: start: 20140501
  2. METHOTREXATE [Concomitant]
     Dosage: UNK
     Dates: start: 201304

REACTIONS (7)
  - Pruritus generalised [Not Recovered/Not Resolved]
  - Lacrimation increased [Not Recovered/Not Resolved]
  - Night sweats [Recovered/Resolved]
  - Malaise [Recovered/Resolved]
  - Dysstasia [Recovered/Resolved]
  - Dizziness [Recovered/Resolved]
  - Influenza [Recovered/Resolved]
